FAERS Safety Report 18355649 (Version 1)
Quarter: 2020Q4

REPORT INFORMATION
  Report Type: Spontaneous
  Country: DE (occurrence: DE)
  Receive Date: 20201007
  Receipt Date: 20201007
  Transmission Date: 20210114
  Serious: No
  Sender: FDA-Public Use
  Company Number: DE-HORMOSAN PHARMA GMBH-2020-04458

PATIENT
  Age: 42 Year
  Sex: Male

DRUGS (2)
  1. SILDENAFIL-HORMOSAN 100 MG FILMTABLETTEN [Suspect]
     Active Substance: SILDENAFIL CITRATE
     Indication: ERECTILE DYSFUNCTION
     Dosage: 0.5 DOSAGE FORM, HALF A TABLET (ON TWO OCCASIONS HE TOOK ANOTHER HALF AFTER 1 OR 2HRS)
     Route: 048
     Dates: start: 202007
  2. SILDENAFIL-HORMOSAN 100 MG FILMTABLETTEN [Suspect]
     Active Substance: SILDENAFIL CITRATE
     Dosage: ONCE HE TOOK A WHOLE TABLET
     Route: 048
     Dates: start: 202007

REACTIONS (2)
  - Drug ineffective [Unknown]
  - Product substitution issue [Unknown]

NARRATIVE: CASE EVENT DATE: 202007
